FAERS Safety Report 23609856 (Version 1)
Quarter: 2024Q1

REPORT INFORMATION
  Report Type: Report from Study
  Country: JP (occurrence: JP)
  Receive Date: 20240308
  Receipt Date: 20240308
  Transmission Date: 20240410
  Serious: Yes (Other)
  Sender: FDA-Public Use
  Company Number: JP-Accord-411805

PATIENT
  Age: 77 Year
  Sex: Female

DRUGS (6)
  1. OXALIPLATIN [Suspect]
     Active Substance: OXALIPLATIN
     Indication: Colorectal cancer
     Dosage: 6 CYCLES
  2. FLUOROURACIL [Concomitant]
     Active Substance: FLUOROURACIL
     Indication: Colorectal cancer
     Dosage: 6 CYCLES
  3. LEUCOVORIN [Concomitant]
     Active Substance: LEUCOVORIN\LEUCOVORIN CALCIUM
     Indication: Colorectal cancer
     Dosage: 6 CYCLES
  4. FLUOROURACIL [Concomitant]
     Active Substance: FLUOROURACIL
     Indication: Metastases to liver
     Dosage: 6 CYCLES
  5. LEUCOVORIN [Concomitant]
     Active Substance: LEUCOVORIN\LEUCOVORIN CALCIUM
     Indication: Metastases to liver
     Dosage: 6 CYCLES
  6. OXALIPLATIN [Suspect]
     Active Substance: OXALIPLATIN
     Indication: Metastases to liver
     Dosage: 6 CYCLES

REACTIONS (3)
  - Drug-induced liver injury [Unknown]
  - Aspartate aminotransferase increased [Unknown]
  - Alanine aminotransferase increased [Unknown]
